FAERS Safety Report 6236683-3 (Version None)
Quarter: 2009Q2

REPORT INFORMATION
  Report Type: 
  Country: None (occurrence: None)
  Receive Date: 20090619
  Receipt Date: 20090212
  Transmission Date: 20091009
  Serious: No
  Sender: FDA-Public Use
  Company Number: US-ASTRAZENECA-2009UW04017

PATIENT
  Age: 53 Year
  Sex: Female

DRUGS (2)
  1. ATACAND HCT [Suspect]
     Route: 048
     Dates: start: 20040922
  2. NEXIUM [Suspect]
     Route: 048

REACTIONS (2)
  - BLOOD PRESSURE INCREASED [None]
  - HEADACHE [None]
